FAERS Safety Report 9221829 (Version 1)
Quarter: 2013Q1

REPORT INFORMATION
  Report Type: Spontaneous
  Country: US (occurrence: None)
  Receive Date: 20120904
  Receipt Date: 20120904
  Transmission Date: 20140127
  Serious: Yes (Hospitalization)
  Sender: FDA-Public Use
  Company Number: AUR-APL-2012-03536

PATIENT
  Age: 22 Year
  Sex: Female

DRUGS (2)
  1. SUMATRIPTAN (SUMATRIPTAN) [Suspect]
     Indication: PRODUCT USED FOR UNKNOWN INDICATION
  2. IMITREX (SUMATRIPTAN) [Suspect]
     Indication: MIGRAINE

REACTIONS (3)
  - Cardiac arrest [None]
  - Myocardial infarction [None]
  - Drug hypersensitivity [None]
